FAERS Safety Report 6555645-X (Version None)
Quarter: 2010Q1

REPORT INFORMATION
  Report Type: 
  Country: None (occurrence: None)
  Receive Date: 20100128
  Receipt Date: 20100114
  Transmission Date: 20100710
  Serious: Yes (Hospitalization, Other)
  Sender: FDA-Public Use
  Company Number: PHEH2008US06050

PATIENT
  Sex: Female

DRUGS (33)
  1. VIVELLE-DOT [Suspect]
     Indication: MENOPAUSAL SYMPTOMS
     Dosage: UNK
     Route: 062
     Dates: start: 19980814, end: 20021226
  2. PREMARIN [Suspect]
     Indication: MENOPAUSAL SYMPTOMS
     Dosage: UNK
     Dates: start: 19980814, end: 20021226
  3. PREMPRO [Suspect]
     Indication: MENOPAUSAL SYMPTOMS
     Dosage: UNK
     Dates: start: 19980814, end: 20021226
  4. MEDROXYPROGESTERONE [Suspect]
     Indication: MENOPAUSAL SYMPTOMS
     Dosage: UNK
     Dates: start: 19980814, end: 20021226
  5. PROMETRIUM [Suspect]
     Indication: MENOPAUSAL SYMPTOMS
     Dosage: UNK
     Dates: start: 19980814, end: 20021226
  6. PRAVACHOL [Concomitant]
  7. TRIAMTERENE AND HYDROCHLOROTHIAZID ^HARRIS^ [Concomitant]
  8. LORAZEPAM [Concomitant]
  9. LEVOTHYROXINE SODIUM [Concomitant]
  10. FORTEO [Concomitant]
  11. CALCIUM [Concomitant]
  12. COUMADIN [Concomitant]
  13. OXYCODONE [Concomitant]
  14. CEPHALEXIN [Concomitant]
  15. CYMBALTA [Concomitant]
  16. IRON [Concomitant]
  17. FIBERCON (POLYCARBOPHIL CALCIUM) [Concomitant]
  18. NABUMETONE [Concomitant]
  19. WARFARIN SODIUM [Concomitant]
  20. AMBIEN [Concomitant]
  21. CLONAZEPAM [Concomitant]
  22. MAGNESIUM [Concomitant]
  23. VITAMIN D [Concomitant]
  24. ACIDOPHILUS ^ZYMA^ [Concomitant]
  25. TAMOXIFEN CITRATE [Concomitant]
  26. FEMARA [Concomitant]
  27. GLUCOSAMINE [Concomitant]
  28. DYAZIDE [Concomitant]
  29. BONIVA [Concomitant]
  30. VIOXX [Concomitant]
  31. REQUIP [Concomitant]
  32. DARVOCET-N 100 [Concomitant]
  33. NABUMETONE [Concomitant]

REACTIONS (41)
  - ANXIETY [None]
  - ARTHRALGIA [None]
  - BASAL CELL CARCINOMA [None]
  - BREAST CANCER [None]
  - CELLULITIS [None]
  - DEPRESSED MOOD [None]
  - DEPRESSION [None]
  - DERMATITIS CONTACT [None]
  - EMOTIONAL DISTRESS [None]
  - EUSTACHIAN TUBE DYSFUNCTION [None]
  - FALL [None]
  - FATIGUE [None]
  - FEMORAL NECK FRACTURE [None]
  - FLANK PAIN [None]
  - FOLLICULITIS [None]
  - FUNGAL INFECTION [None]
  - HAEMORRHOIDS [None]
  - HERPES ZOSTER [None]
  - HOT FLUSH [None]
  - HYPERCHOLESTEROLAEMIA [None]
  - HYPERLIPIDAEMIA [None]
  - HYPOTHYROIDISM [None]
  - INJURY [None]
  - JOINT INJURY [None]
  - MALIGNANT MELANOMA [None]
  - MASTECTOMY [None]
  - MELANOCYTIC NAEVUS [None]
  - MENIERE'S DISEASE [None]
  - MOLLUSCUM CONTAGIOSUM [None]
  - NEUROPATHY PERIPHERAL [None]
  - NEUTROPENIA [None]
  - OEDEMA [None]
  - ORAL CANDIDIASIS [None]
  - OSTEOARTHRITIS [None]
  - OSTEOPOROSIS [None]
  - OVARIAN CYST [None]
  - PAIN [None]
  - PHARYNGITIS [None]
  - RADIOTHERAPY [None]
  - THROMBOSIS IN DEVICE [None]
  - UTERINE LEIOMYOMA [None]
